FAERS Safety Report 10618717 (Version 1)
Quarter: 2014Q4

REPORT INFORMATION
  Report Type: Spontaneous
  Country: KR (occurrence: KR)
  Receive Date: 20141202
  Receipt Date: 20141202
  Transmission Date: 20150529
  Serious: Yes (Death, Other)
  Sender: FDA-Public Use
  Company Number: KR-CELGENE-KOR-2014110301

PATIENT

DRUGS (4)
  1. VIDAZA [Suspect]
     Active Substance: AZACITIDINE
     Indication: CHRONIC MYELOMONOCYTIC LEUKAEMIA
  2. DECITABINE. [Concomitant]
     Active Substance: DECITABINE
     Indication: CHRONIC MYELOMONOCYTIC LEUKAEMIA
  3. DECITABINE. [Concomitant]
     Active Substance: DECITABINE
     Indication: MYELODYSPLASTIC SYNDROME
     Route: 041
     Dates: start: 200609, end: 201010
  4. VIDAZA [Suspect]
     Active Substance: AZACITIDINE
     Indication: MYELODYSPLASTIC SYNDROME
     Dosage: 75 MILLIGRAM/SQ. METER
     Route: 065
     Dates: start: 200609, end: 201010

REACTIONS (5)
  - Drug intolerance [Unknown]
  - Acute myeloid leukaemia [Unknown]
  - Treatment failure [Unknown]
  - Myelodysplastic syndrome transformation [Unknown]
  - Death [Fatal]
